FAERS Safety Report 9577552 (Version 1)
Quarter: 2013Q4

REPORT INFORMATION
  Report Type: Spontaneous
  Country: US (occurrence: US)
  Receive Date: 20131001
  Receipt Date: 20131001
  Transmission Date: 20140711
  Serious: No
  Sender: FDA-Public Use
  Company Number: US-AMGEN-USASP2013008969

PATIENT
  Age: 81 Year
  Sex: Female

DRUGS (4)
  1. ENBREL [Suspect]
     Indication: ANKYLOSING SPONDYLITIS
     Dosage: 50 MG, QWK
     Route: 058
     Dates: start: 20110610
  2. FUROSEMIDE [Concomitant]
     Dosage: 40 MG, QD
     Route: 048
  3. TOPROL [Concomitant]
     Dosage: 50 MG, QD
     Route: 048
  4. CRESTOR [Concomitant]
     Dosage: 10 MG, QD
     Route: 048

REACTIONS (1)
  - Cataract [Recovered/Resolved]
